FAERS Safety Report 9757156 (Version 3)
Quarter: 2014Q1

REPORT INFORMATION
  Report Type: Spontaneous
  Country: US (occurrence: US)
  Receive Date: 20131213
  Receipt Date: 20140128
  Transmission Date: 20141002
  Serious: Yes (Other)
  Sender: FDA-Public Use
  Company Number: US-BAXTER-2013BAX049477

PATIENT
  Age: 20 Year
  Sex: Female

DRUGS (1)
  1. TISSEEL VH S/D [Suspect]
     Indication: TYMPANOPLASTY
     Route: 065
     Dates: start: 20131204, end: 20131204

REACTIONS (1)
  - Graft complication [Unknown]
